FAERS Safety Report 4475542-3 (Version None)
Quarter: 2004Q4

REPORT INFORMATION
  Report Type: 
  Country: None (occurrence: None)
  Receive Date: 20041015
  Receipt Date: 20041001
  Transmission Date: 20050328
  Serious: Yes (Hospitalization, Other)
  Sender: FDA-Public Use
  Company Number: US-MERCK-0410USA00329

PATIENT
  Age: 51 Year
  Sex: Male

DRUGS (6)
  1. ASPIRIN [Concomitant]
     Route: 065
  2. GLUCOTROL XL [Concomitant]
     Route: 065
  3. ACCUPRIL [Concomitant]
     Route: 065
  4. VIOXX [Suspect]
     Indication: TENDONITIS
     Route: 048
     Dates: start: 20040924, end: 20040927
  5. AVANDIA [Concomitant]
     Route: 065
  6. ZOCOR [Concomitant]
     Route: 048

REACTIONS (2)
  - COMA [None]
  - CONVULSION [None]
